FAERS Safety Report 21571569 (Version 1)
Quarter: 2022Q4

REPORT INFORMATION
  Report Type: Spontaneous
  Country: CN (occurrence: CN)
  Receive Date: 20221109
  Receipt Date: 20221109
  Transmission Date: 20230113
  Serious: Yes (Hospitalization)
  Sender: FDA-Public Use
  Company Number: CN-GLAXOSMITHKLINE-CN2022APC159190

PATIENT

DRUGS (2)
  1. LAMICTAL [Suspect]
     Active Substance: LAMOTRIGINE
     Indication: Epilepsy
     Dosage: 1 DF, QD
     Route: 048
     Dates: start: 20221001, end: 20221019
  2. LAMICTAL [Suspect]
     Active Substance: LAMOTRIGINE
     Dosage: 1 DF, BID
     Route: 048
     Dates: start: 20221001, end: 20221019

REACTIONS (6)
  - Rash erythematous [Recovering/Resolving]
  - Pruritus [Recovering/Resolving]
  - Skin discolouration [Unknown]
  - Drug eruption [Unknown]
  - Insomnia [Unknown]
  - Erythema [Recovered/Resolved]

NARRATIVE: CASE EVENT DATE: 20221002
